FAERS Safety Report 4909972-X (Version None)
Quarter: 2006Q1

REPORT INFORMATION
  Report Type: 
  Country: None (occurrence: None)
  Receive Date: 20060213
  Receipt Date: 20060210
  Transmission Date: 20060701
  Serious: Yes (Other)
  Sender: FDA-Public Use
  Company Number: 200610646EU

PATIENT
  Age: 72 Year
  Sex: Female

DRUGS (1)
  1. NICORETTE [Suspect]
     Dosage: 2MG FIFTEEN TIMES PER DAY
     Route: 002
     Dates: start: 19910101

REACTIONS (3)
  - ARTHRITIS [None]
  - DEPENDENCE [None]
  - MEDICATION ERROR [None]
